FAERS Safety Report 14248709 (Version 7)
Quarter: 2018Q1

REPORT INFORMATION
  Report Type: Report from Study
  Country: CA (occurrence: CA)
  Receive Date: 20171204
  Receipt Date: 20180314
  Transmission Date: 20180508
  Serious: Yes (Hospitalization, Other)
  Sender: FDA-Public Use
  Company Number: CA-PFIZER INC-2017516272

PATIENT
  Age: 52 Year
  Sex: Female

DRUGS (7)
  1. STATEX [Concomitant]
     Active Substance: MORPHINE SULFATE
     Indication: PAIN
     Dosage: UNK
  2. ENTYVIO [Suspect]
     Active Substance: VEDOLIZUMAB
     Dosage: 300 MG, UNK
     Route: 042
  3. ENTYVIO [Suspect]
     Active Substance: VEDOLIZUMAB
     Indication: CROHN^S DISEASE
     Dosage: 300 MG, UNK
     Route: 042
     Dates: start: 20170818
  4. ENTYVIO [Suspect]
     Active Substance: VEDOLIZUMAB
     Dosage: 300 MG, UNK
     Route: 042
     Dates: end: 20180202
  5. CANDISTAT [Concomitant]
     Dosage: UNK
  6. PANTOLOC [Suspect]
     Active Substance: PANTOPRAZOLE SODIUM
     Dosage: UNK
     Route: 065
     Dates: start: 20080701
  7. CODEINE CONTIN [Concomitant]
     Active Substance: CODEINE SULFATE
     Dosage: UNK

REACTIONS (7)
  - Accident at work [Unknown]
  - Brain neoplasm [Not Recovered/Not Resolved]
  - Head injury [Unknown]
  - Condition aggravated [Not Recovered/Not Resolved]
  - Deafness [Unknown]
  - Colitis ulcerative [Not Recovered/Not Resolved]
  - Crohn^s disease [Not Recovered/Not Resolved]

NARRATIVE: CASE EVENT DATE: 201709
